FAERS Safety Report 7058933-6 (Version None)
Quarter: 2010Q4

REPORT INFORMATION
  Report Type: 
  Country: None (occurrence: None)
  Receive Date: 20101024
  Receipt Date: 20101011
  Transmission Date: 20110411
  Serious: Yes (Hospitalization, Other)
  Sender: FDA-Public Use
  Company Number: US-ELI_LILLY_AND_COMPANY-US201010002767

PATIENT
  Sex: Female

DRUGS (23)
  1. FORTEO [Suspect]
     Indication: OSTEOPOROSIS
     Dosage: 20 UG, DAILY (1/D)
  2. FORTEO [Suspect]
     Dosage: 20 UG, DAILY (1/D)
  3. COUMADIN [Concomitant]
     Dosage: 2 MG, UNK
  4. COUMADIN [Concomitant]
     Dosage: 3 MG, UNK
  5. PREDNISONE [Concomitant]
     Dosage: 7.5 MG, DAILY (1/D)
  6. METHOTREXATE [Concomitant]
     Dosage: 0.5 ML, WEEKLY (1/W)
  7. FOLIC ACID [Concomitant]
     Dosage: 1 MG, DAILY (1/D)
  8. LYRICA [Concomitant]
     Dosage: 450 MG, DAILY (1/D)
  9. PRASTERONE [Concomitant]
     Dosage: 25 MG, DAILY (1/D)
  10. CELEBREX [Concomitant]
     Dosage: 400 MG, DAILY (1/D)
  11. AROMASIN [Concomitant]
     Dosage: 25 MG, DAILY (1/D)
  12. ZOCOR [Concomitant]
     Dosage: 40 MG, DAILY (1/D)
  13. PRILOSEC [Concomitant]
     Dosage: 20 MG, DAILY (1/D)
  14. FERROUS SULFATE [Concomitant]
     Dosage: 325 MG, DAILY (1/D)
  15. CALCIUM CITRATE W/VITAMIN D NOS [Concomitant]
     Dosage: 1260 MG, DAILY (1/D)
  16. LOPRESSOR [Concomitant]
     Dosage: 150 MG, DAILY (1/D)
  17. MAGNESIUM OXIDE [Concomitant]
     Dosage: 800 MG, DAILY (1/D)
  18. VITAMIN D [Concomitant]
     Dosage: 1000 U, DAILY (1/D)
  19. ASCORBIC ACID [Concomitant]
     Dosage: 1000 MG, DAILY (1/D)
  20. CENTRUM SILVER [Concomitant]
  21. TRIMETHOPRIM [Concomitant]
     Dosage: 100 MG, DAILY (1/D)
  22. REMICADE [Concomitant]
     Indication: ARTHRITIS
  23. RECLAST [Concomitant]

REACTIONS (7)
  - ASTHENIA [None]
  - ATRIAL FIBRILLATION [None]
  - IMPAIRED HEALING [None]
  - PULMONARY EMBOLISM [None]
  - SPINAL OPERATION [None]
  - UPPER LIMB FRACTURE [None]
  - WALKING AID USER [None]
